FAERS Safety Report 5248487-9 (Version None)
Quarter: 2007Q1

REPORT INFORMATION
  Report Type: 
  Country: None (occurrence: None)
  Receive Date: 20070227
  Receipt Date: 20070215
  Transmission Date: 20070707
  Serious: Yes (Other)
  Sender: FDA-Public Use
  Company Number: GB-PFIZER INC-2006089996

PATIENT
  Age: 55 Year
  Sex: Female

DRUGS (12)
  1. VORICONAZOLE [Suspect]
     Indication: CANDIDIASIS
     Route: 048
     Dates: start: 20041201, end: 20050601
  2. METHOTREXATE [Concomitant]
     Route: 048
  3. PREDNISOLONE [Concomitant]
     Route: 048
  4. LIPITOR [Concomitant]
     Route: 048
  5. FUROSEMIDE [Concomitant]
     Route: 048
  6. CALCICHEW [Concomitant]
     Route: 048
  7. AMLODIPINE [Concomitant]
     Route: 048
  8. RISEDRONATE SODIUM [Concomitant]
     Route: 048
  9. BETALOC [Concomitant]
     Route: 048
  10. LAMICTAL [Concomitant]
     Route: 048
  11. SLOW-K [Concomitant]
     Route: 048
  12. ZINC [Concomitant]
     Route: 048

REACTIONS (1)
  - PSEUDOPORPHYRIA [None]
